FAERS Safety Report 4497949-0 (Version None)
Quarter: 2004Q4

REPORT INFORMATION
  Report Type: 
  Country: None (occurrence: None)
  Receive Date: 20041104
  Receipt Date: 20041022
  Transmission Date: 20050328
  Serious: Yes (Hospitalization)
  Sender: FDA-Public Use
  Company Number: 2004075335

PATIENT
  Age: 38 Year
  Sex: Female
  Weight: 43 kg

DRUGS (7)
  1. SULPERAZON         (CEFOPERAZONE, SULBACTAM) [Suspect]
     Indication: PHARYNGOLARYNGEAL PAIN
     Dosage: 0.5 GRAM (0.5 GRAM, 1 IN 1 D), INTRAVENOUS
     Route: 042
     Dates: start: 20041001, end: 20041001
  2. SULPERAZON         (CEFOPERAZONE, SULBACTAM) [Suspect]
     Indication: PYREXIA
     Dosage: 0.5 GRAM (0.5 GRAM, 1 IN 1 D), INTRAVENOUS
     Route: 042
     Dates: start: 20041001, end: 20041001
  3. SULPERAZON         (CEFOPERAZONE, SULBACTAM) [Suspect]
     Indication: SEPSIS
     Dosage: 0.5 GRAM (0.5 GRAM, 1 IN 1 D), INTRAVENOUS
     Route: 042
     Dates: start: 20041001, end: 20041001
  4. LINCOMYCIN  HYDROCHLORIDE MONOHYDRATE [Suspect]
     Indication: INFECTION
     Dosage: 600 MG (600 MG, 1 IN 1 D), INTRAMUSCULAR
     Route: 030
     Dates: start: 20040929, end: 20040929
  5. LINCOMYCIN  HYDROCHLORIDE MONOHYDRATE [Suspect]
     Indication: PHARYNGOLARYNGEAL PAIN
     Dosage: 600 MG (600 MG, 1 IN 1 D), INTRAMUSCULAR
     Route: 030
     Dates: start: 20040929, end: 20040929
  6. LINCOMYCIN  HYDROCHLORIDE MONOHYDRATE [Suspect]
     Indication: PYREXIA
     Dosage: 600 MG (600 MG, 1 IN 1 D), INTRAMUSCULAR
     Route: 030
     Dates: start: 20040929, end: 20040929
  7. CLARITHROMYCIN [Concomitant]

REACTIONS (4)
  - DRUG HYPERSENSITIVITY [None]
  - PYREXIA [None]
  - RASH GENERALISED [None]
  - WHITE BLOOD CELL COUNT DECREASED [None]
